FAERS Safety Report 8182173-0 (Version None)
Quarter: 2012Q1

REPORT INFORMATION
  Report Type: 
  Country: None (occurrence: None)
  Receive Date: 20120302
  Receipt Date: 20120224
  Transmission Date: 20120608
  Serious: Yes (Hospitalization)
  Sender: FDA-Public Use
  Company Number: US-ASTRAZENECA-2010SE32843

PATIENT
  Age: 67 Year
  Sex: Male

DRUGS (5)
  1. DAYPRO [Concomitant]
     Dates: start: 20080801
  2. TEVETAN [Concomitant]
     Dosage: 600/12.5 MG
     Dates: start: 20080801
  3. ZETIA [Concomitant]
     Dates: start: 20080801
  4. TOPROL-XL [Suspect]
     Indication: BLOOD PRESSURE ABNORMAL
     Route: 048
  5. ZANTAC [Concomitant]
     Dates: start: 20080801

REACTIONS (1)
  - RENAL IMPAIRMENT [None]
